FAERS Safety Report 24595586 (Version 1)
Quarter: 2024Q4

REPORT INFORMATION
  Report Type: Spontaneous
  Country: FI (occurrence: FI)
  Receive Date: 20241109
  Receipt Date: 20241109
  Transmission Date: 20250114
  Serious: Yes (Other)
  Sender: ROCHE
  Company Number: FI-ROCHE-10000125202

PATIENT

DRUGS (1)
  1. OCREVUS [Suspect]
     Active Substance: OCRELIZUMAB
     Indication: Multiple sclerosis
     Route: 065
     Dates: start: 202404

REACTIONS (2)
  - Tooth fracture [Unknown]
  - Dental caries [Unknown]
